FAERS Safety Report 8255950-5 (Version None)
Quarter: 2012Q1

REPORT INFORMATION
  Report Type: 
  Country: None (occurrence: None)
  Receive Date: 20120329
  Receipt Date: 20120321
  Transmission Date: 20120608
  Serious: Yes (Hospitalization)
  Sender: FDA-Public Use
  Company Number: ADR-2012-00609

PATIENT
  Sex: Female

DRUGS (1)
  1. BACLOFEN [Suspect]

REACTIONS (3)
  - IMPLANT SITE SWELLING [None]
  - INCORRECT ROUTE OF DRUG ADMINISTRATION [None]
  - MEDICAL DEVICE COMPLICATION [None]
